FAERS Safety Report 19967991 (Version 1)
Quarter: 2021Q4

REPORT INFORMATION
  Report Type: Spontaneous
  Country: PT (occurrence: PT)
  Receive Date: 20211019
  Receipt Date: 20211019
  Transmission Date: 20220303
  Serious: Yes (Life-Threatening, Hospitalization, Other)
  Sender: FDA-Public Use
  Company Number: PT-MACLEODS PHARMACEUTICALS US LTD-MAC2021033007

PATIENT

DRUGS (1)
  1. LIDOCAINE [Suspect]
     Active Substance: LIDOCAINE
     Indication: Local anaesthesia
     Dosage: 1600 MILLIGRAM, 2 PERCENT, AROUND SIX TIMES THE MAXIMUM RECOMMENDED DOSE OF 4.5 MILLIGRAMS PER KILOG
     Route: 065

REACTIONS (9)
  - Supraventricular extrasystoles [Recovered/Resolved]
  - Psychomotor hyperactivity [Recovered/Resolved]
  - Tachycardia [Recovered/Resolved]
  - Local anaesthetic systemic toxicity [Recovered/Resolved]
  - Altered state of consciousness [Recovered/Resolved]
  - Ventricular extrasystoles [Recovered/Resolved]
  - Hypertension [Recovered/Resolved]
  - Hypotension [Recovered/Resolved]
  - Incorrect dose administered [Recovered/Resolved]
